FAERS Safety Report 6767753-9 (Version None)
Quarter: 2010Q2

REPORT INFORMATION
  Report Type: 
  Country: None (occurrence: None)
  Receive Date: 20100610
  Receipt Date: 20100601
  Transmission Date: 20101027
  Serious: Yes (Other)
  Sender: FDA-Public Use
  Company Number: 8046025

PATIENT
  Sex: Female
  Weight: 85 kg

DRUGS (2)
  1. KEPPRA [Suspect]
     Indication: EPILEPSY
     Dosage: (750 MG BID ORAL)
     Route: 048
     Dates: start: 20050101
  2. DEPAKENE [Concomitant]

REACTIONS (5)
  - DRUG EXPOSURE DURING PREGNANCY [None]
  - GESTATIONAL DIABETES [None]
  - PRE-ECLAMPSIA [None]
  - PREGNANCY [None]
  - TWIN PREGNANCY [None]
